FAERS Safety Report 8523490 (Version 2)
Quarter: 2013Q1

REPORT INFORMATION
  Report Type: Report from Study
  Country: JP (occurrence: JP)
  Receive Date: 20120420
  Receipt Date: 20130207
  Transmission Date: 20140127
  Serious: Yes (Other)
  Sender: FDA-Public Use
  Company Number: JP-VERTEX PHARMACEUTICALS INC.-AE-2012-005172

PATIENT
  Age: 57 Year
  Sex: Male

DRUGS (6)
  1. VX-950 (TELAPREVIR) [Suspect]
     Indication: CHRONIC HEPATITIS C
     Dosage: 2250 MG, QD
     Route: 048
     Dates: start: 20120106, end: 20120301
  2. PEGINTRON [Suspect]
     Indication: CHRONIC HEPATITIS C
     Dosage: 100 ?G, QW
     Route: 058
     Dates: start: 20120106, end: 20120224
  3. REBETOL [Concomitant]
     Dosage: 800 MG, QD
     Route: 048
     Dates: start: 20120106, end: 20120301
  4. ALLEGRA [Concomitant]
     Dosage: 120 MG, QD
     Route: 048
     Dates: start: 20120106, end: 20120119
  5. RIKKUNSHI-TO [Concomitant]
     Dosage: 7.5 G, QD
     Route: 048
     Dates: start: 20120106, end: 20120119
  6. MICARDIS [Concomitant]
     Dosage: 80 MG, QD
     Route: 048

REACTIONS (1)
  - Retinopathy [Recovered/Resolved]
